FAERS Safety Report 7028006-7 (Version None)
Quarter: 2010Q3

REPORT INFORMATION
  Report Type: 
  Country: None (occurrence: None)
  Receive Date: 20100819
  Receipt Date: 20100810
  Transmission Date: 20110219
  Serious: Yes (Hospitalization, Other)
  Sender: FDA-Public Use
  Company Number: THYM-1001322

PATIENT
  Age: 68 Year
  Sex: Female
  Weight: 47 kg

DRUGS (7)
  1. THYMOGLOBULIN [Suspect]
     Indication: APLASTIC ANAEMIA
     Dosage: 2.5 MG, ONCE, INTRAVENOUS; 147.5 MG, ONCE, INTRAVENOUS; 150 MG, QD, INTRAVENOUS
     Route: 042
     Dates: start: 20090526, end: 20090526
  2. THYMOGLOBULIN [Suspect]
     Indication: APLASTIC ANAEMIA
     Dosage: 2.5 MG, ONCE, INTRAVENOUS; 147.5 MG, ONCE, INTRAVENOUS; 150 MG, QD, INTRAVENOUS
     Route: 042
     Dates: start: 20090527, end: 20090530
  3. THYMOGLOBULIN [Suspect]
  4. CYCLOSPORINE [Concomitant]
  5. FILGRASTIM (FILGRASTIM) [Concomitant]
  6. METHYLPREDNISOLONE [Concomitant]
  7. PREDNISOLONE [Concomitant]

REACTIONS (9)
  - BACTERIAL SEPSIS [None]
  - CHOLANGITIS [None]
  - CYTOMEGALOVIRUS INFECTION [None]
  - ESCHERICHIA SEPSIS [None]
  - HISTIOCYTOSIS HAEMATOPHAGIC [None]
  - OESOPHAGEAL CANDIDIASIS [None]
  - OESOPHAGITIS HAEMORRHAGIC [None]
  - ORAL CANDIDIASIS [None]
  - SUPRAVENTRICULAR TACHYCARDIA [None]
